FAERS Safety Report 10258031 (Version 1)
Quarter: 2014Q2

REPORT INFORMATION
  Report Type: Spontaneous
  Country: US (occurrence: US)
  Receive Date: 20140625
  Receipt Date: 20140625
  Transmission Date: 20141212
  Serious: No
  Sender: FDA-Public Use
  Company Number: US-PFIZER INC-2014173998

PATIENT
  Sex: Female

DRUGS (2)
  1. ADVIL [Suspect]
     Dosage: UNK
     Route: 048
  2. ADVIL [Suspect]
     Dosage: UNK
     Route: 048

REACTIONS (5)
  - Wrong technique in drug usage process [Unknown]
  - Dysgeusia [Unknown]
  - Nervousness [Unknown]
  - Feeling abnormal [Unknown]
  - Fear [Unknown]
